FAERS Safety Report 13397730 (Version 1)
Quarter: 2017Q2

REPORT INFORMATION
  Report Type: Spontaneous
  Country: CH (occurrence: AU)
  Receive Date: 20170403
  Receipt Date: 20170403
  Transmission Date: 20170830
  Serious: Yes (Other)
  Sender: FDA-Public Use
  Company Number: CH-LPDUSPRD-20170357

PATIENT
  Age: 63 Year
  Sex: Male

DRUGS (3)
  1. VENOFER [Suspect]
     Active Substance: IRON SUCROSE
     Dosage: DOSE UNKNOWN
     Route: 041
  2. MABTHERA [Suspect]
     Active Substance: RITUXIMAB
     Dosage: DOSE UNKNOWN
     Route: 041
  3. BENDAMUSTINE [Concomitant]
     Active Substance: BENDAMUSTINE
     Dosage: DOSE UNKNOWN
     Route: 065

REACTIONS (5)
  - Infusion related reaction [Unknown]
  - Pyrexia [Unknown]
  - Angioedema [Unknown]
  - Rash [Unknown]
  - Tachycardia [Unknown]
